FAERS Safety Report 9465486 (Version 2)
Quarter: 2013Q3

REPORT INFORMATION
  Report Type: Report from Study
  Country: US (occurrence: US)
  Receive Date: 20130820
  Receipt Date: 20130913
  Transmission Date: 20140515
  Serious: Yes (Life-Threatening, Other)
  Sender: FDA-Public Use
  Company Number: PHEH2013US017561

PATIENT
  Age: 43 Year
  Sex: Male
  Weight: 92 kg

DRUGS (6)
  1. TRILEPTAL [Suspect]
     Indication: CONVULSION
     Dosage: 1200 MG, DAILY
     Route: 048
     Dates: start: 20120104
  2. TRILEPTAL [Suspect]
     Dosage: UNK DOSE INCREASED
     Route: 048
  3. NEXUM [Concomitant]
     Indication: GASTROOESOPHAGEAL REFLUX DISEASE
     Dosage: 40 MG A DAY
     Route: 048
     Dates: start: 20130904
  4. ALBUTEROL [Concomitant]
     Indication: ASTHMA
     Dosage: 90 UG 2 PUFFS PRN (AS NEEDED)
     Dates: start: 20110501
  5. SYMBICORT [Concomitant]
     Indication: ASTHMA
     Dosage: 160 UG, UNK
     Dates: start: 20130402
  6. VERAPAMIL [Concomitant]
     Indication: MIGRAINE
     Dosage: 240 UKN, UNK
     Route: 048
     Dates: start: 20130804

REACTIONS (7)
  - Convulsion [Recovering/Resolving]
  - Sensory disturbance [Recovering/Resolving]
  - Amnesia [Recovering/Resolving]
  - Confusional state [Recovering/Resolving]
  - Asthenia [Recovering/Resolving]
  - Somnolence [Recovering/Resolving]
  - Lethargy [Recovering/Resolving]
